FAERS Safety Report 9390702 (Version 1)
Quarter: 2013Q3

REPORT INFORMATION
  Report Type: Spontaneous
  Country: US (occurrence: None)
  Receive Date: 20130705
  Receipt Date: 20130705
  Transmission Date: 20140515
  Serious: Yes (Death)
  Sender: FDA-Public Use
  Company Number: None

PATIENT
  Age: 63 Year
  Sex: Male

DRUGS (1)
  1. STIVARGA 40MG BAYER [Suspect]
     Dosage: 160MG QD PO
     Route: 048
     Dates: start: 20130314, end: 20130621

REACTIONS (2)
  - Pneumonia [None]
  - Dyspnoea [None]
